FAERS Safety Report 9886291 (Version 1)
Quarter: 2014Q1

REPORT INFORMATION
  Report Type: Spontaneous
  Country: US (occurrence: US)
  Receive Date: 20140210
  Receipt Date: 20140210
  Transmission Date: 20141002
  Serious: No
  Sender: FDA-Public Use
  Company Number: US-ENDO PHARMACEUTICALS INC.-SULF20130005

PATIENT
  Age: 66 Year
  Sex: Male

DRUGS (3)
  1. SULFASALAZINE DR (EC) [Suspect]
     Indication: COLITIS
     Route: 048
     Dates: start: 20130325
  2. ALFUZOSIN [Concomitant]
     Indication: PROSTATOMEGALY
     Route: 048
  3. ZOCOR [Concomitant]
     Indication: BLOOD CHOLESTEROL INCREASED
     Route: 048

REACTIONS (1)
  - Drug ineffective [Not Recovered/Not Resolved]
